FAERS Safety Report 4820199-2 (Version None)
Quarter: 2005Q4

REPORT INFORMATION
  Report Type: 
  Country: None (occurrence: None)
  Receive Date: 20051014
  Receipt Date: 20050730
  Transmission Date: 20060501
  Serious: No
  Sender: FDA-Public Use
  Company Number: 2005SP002178

PATIENT
  Age: 68 Year
  Sex: Male
  Weight: 70.3075 kg

DRUGS (5)
  1. LUNESTA [Suspect]
     Dosage: HS;ORAL
     Route: 048
     Dates: start: 20050729, end: 20050729
  2. PRILOSEC [Concomitant]
  3. PIOGLITAZONE HCL [Concomitant]
  4. HYZAAR [Concomitant]
  5. VITAMINS [Concomitant]

REACTIONS (2)
  - DRUG INEFFECTIVE [None]
  - INSOMNIA [None]
